FAERS Safety Report 10228549 (Version 1)
Quarter: 2014Q2

REPORT INFORMATION
  Report Type: Spontaneous
  Country: CN (occurrence: CN)
  Receive Date: 20140610
  Receipt Date: 20140610
  Transmission Date: 20141212
  Serious: Yes (Other)
  Sender: FDA-Public Use
  Company Number: CN-ASTRAZENECA-2014SE40364

PATIENT
  Sex: Male
  Weight: 10 kg

DRUGS (5)
  1. BUDESONIDE SUSPENSION [Suspect]
     Indication: SPUTUM ABNORMAL
     Route: 055
     Dates: start: 20120730, end: 20120806
  2. TERBUTALINE SULFATE [Suspect]
     Indication: SPUTUM ABNORMAL
     Route: 055
     Dates: start: 20120730, end: 20120806
  3. AMBROXOL [Suspect]
     Indication: SPUTUM ABNORMAL
     Route: 041
     Dates: start: 20120730, end: 20120806
  4. IPRATROPIUM BROMIDE [Suspect]
     Indication: SPUTUM ABNORMAL
     Route: 055
     Dates: start: 20120730, end: 20120806
  5. ERYTHROMYCIN [Suspect]
     Indication: MYCOPLASMA INFECTION
     Route: 041
     Dates: start: 20120731, end: 20120806

REACTIONS (1)
  - Granulocytopenia [Recovering/Resolving]
